FAERS Safety Report 19866497 (Version 12)
Quarter: 2025Q4

REPORT INFORMATION
  Report Type: Report from Study
  Country: GB (occurrence: GB)
  Receive Date: 20210921
  Receipt Date: 20251120
  Transmission Date: 20260118
  Serious: Yes (Hospitalization)
  Sender: NOVARTIS
  Company Number: GB-NOVARTISPH-NVSC2021GB206310

PATIENT
  Age: 43 Year
  Sex: Female

DRUGS (3)
  1. SANDOSTATIN LAR DEPOT [Suspect]
     Active Substance: OCTREOTIDE ACETATE
     Indication: Neuroendocrine tumour
     Dosage: 30 MG, Q4W (EVERY 4 WEEKS, FORMULATION ALSO REPORTED AS DRY POWDER)
     Route: 030
     Dates: start: 202104
  2. SANDOSTATIN LAR DEPOT [Suspect]
     Active Substance: OCTREOTIDE ACETATE
     Dosage: 50 MG, Q3W
     Route: 030
  3. SANDOSTATIN LAR DEPOT [Suspect]
     Active Substance: OCTREOTIDE ACETATE
     Dosage: 50 MG, Q4W
     Route: 030

REACTIONS (10)
  - Pain [Unknown]
  - Lower respiratory tract infection [Unknown]
  - Rash [Unknown]
  - Thrombosis [Unknown]
  - Insomnia [Unknown]
  - Dizziness [Unknown]
  - Injection site pain [Unknown]
  - Injection site mass [Unknown]
  - Off label use [Unknown]
  - Feeling abnormal [Unknown]

NARRATIVE: CASE EVENT DATE: 20210801
